FAERS Safety Report 8618157-5 (Version None)
Quarter: 2012Q3

REPORT INFORMATION
  Report Type: 
  Country: None (occurrence: None)
  Receive Date: 20120824
  Receipt Date: 20120313
  Transmission Date: 20120928
  Serious: Yes (Other)
  Sender: FDA-Public Use
  Company Number: US-ASTRAZENECA-2012SE17254

PATIENT
  Age: 87 Year
  Sex: Male
  Weight: 206.4 kg

DRUGS (6)
  1. AVODART [Concomitant]
     Indication: PROSTATIC DISORDER
  2. FLOMAX [Concomitant]
     Indication: PROSTATIC DISORDER
  3. VITAMIN TAB [Concomitant]
  4. SYMBICORT [Suspect]
     Indication: CHRONIC OBSTRUCTIVE PULMONARY DISEASE
     Dosage: 160/4.5 MCG 2 PUFFS TWICE DAILY
     Route: 055
     Dates: start: 20100101
  5. SYMBICORT [Suspect]
     Indication: EMPHYSEMA
     Dosage: 160/4.5 MCG 2 PUFFS TWICE DAILY
     Route: 055
     Dates: start: 20100101
  6. SPIRIVA [Concomitant]

REACTIONS (3)
  - VISION BLURRED [None]
  - CATARACT [None]
  - MACULAR DEGENERATION [None]
